FAERS Safety Report 6052957-3 (Version None)
Quarter: 2009Q1

REPORT INFORMATION
  Report Type: 
  Country: None (occurrence: None)
  Receive Date: 20090127
  Receipt Date: 20090116
  Transmission Date: 20090719
  Serious: Yes (Other)
  Sender: FDA-Public Use
  Company Number: US-BAYER-200911049NA

PATIENT
  Age: 23 Year
  Sex: Female
  Weight: 88 kg

DRUGS (8)
  1. MIRENA [Suspect]
     Indication: CONTRACEPTION
     Route: 015
     Dates: start: 20081210, end: 20090115
  2. LOVENOX [Concomitant]
     Indication: HYPERCOAGULATION
  3. ATENOLOL [Concomitant]
     Indication: PALPITATIONS
  4. ALBUTEROL SULATE [Concomitant]
  5. ADVAIR DISKUS 100/50 [Concomitant]
     Indication: ASTHMA
  6. ZOFRAN [Concomitant]
     Indication: VOMITING
  7. KYTRIL [Concomitant]
     Indication: VOMITING
  8. VICODIN [Concomitant]
     Indication: PELVIC PAIN

REACTIONS (7)
  - CONSTIPATION [None]
  - HAEMATOCHEZIA [None]
  - IRRITABILITY [None]
  - NAUSEA [None]
  - PELVIC PAIN [None]
  - VOMITING [None]
  - WEIGHT INCREASED [None]
